FAERS Safety Report 16648927 (Version 4)
Quarter: 2019Q4

REPORT INFORMATION
  Report Type: Spontaneous
  Country: US (occurrence: US)
  Receive Date: 20190730
  Receipt Date: 20191011
  Transmission Date: 20200122
  Serious: Yes (Hospitalization, Other)
  Sender: FDA-Public Use
  Company Number: US-CATALYST PHARMACEUTICALS, INC-2019CAT00289

PATIENT
  Age: 88 Year
  Sex: Female
  Weight: 56.24 kg

DRUGS (19)
  1. TRAMADOL. [Concomitant]
     Active Substance: TRAMADOL
     Dosage: 50 MG, 1X/DAY AT BEDTIME
     Route: 048
  2. VITAMIN D [Concomitant]
     Active Substance: VITAMIN D NOS
  3. FIRDAPSE [Suspect]
     Active Substance: AMIFAMPRIDINE
     Indication: MYASTHENIC SYNDROME
     Dosage: 10 MG, 4X/DAY
     Route: 048
     Dates: start: 2018, end: 20190718
  4. FENTANYL TRANSDERMAL SYSTEM [Concomitant]
     Active Substance: FENTANYL
     Dosage: 12 ?G, EVERY 72 HOURS
     Route: 061
  5. FIRDAPSE [Suspect]
     Active Substance: AMIFAMPRIDINE
     Dosage: UNK, 2X/DAY
     Route: 048
     Dates: start: 20190722, end: 20190722
  6. ELIQUIS [Concomitant]
     Active Substance: APIXABAN
     Dosage: 2.5 MG, 2X/DAY
     Route: 048
  7. FIRDAPSE [Suspect]
     Active Substance: AMIFAMPRIDINE
     Dosage: 10 MG, 4X/DAY
     Route: 048
     Dates: start: 20190723
  8. METOPROLOL SUCCINATE ER [Concomitant]
     Active Substance: METOPROLOL SUCCINATE
     Dosage: 50 MG, 2X/DAY
     Route: 048
  9. MESTINON [Concomitant]
     Active Substance: PYRIDOSTIGMINE BROMIDE
     Dosage: 60 MG, 1X/DAY
     Route: 048
     Dates: start: 20130808
  10. FLECAINIDE [Concomitant]
     Active Substance: FLECAINIDE
     Dosage: UNK
     Dates: end: 201907
  11. CITRACAL + D [Concomitant]
     Active Substance: CALCIUM CITRATE\VITAMIN D
     Route: 048
  12. FISH OIL/SUPER POTENT/NO BURP [Concomitant]
     Route: 048
  13. FIRDAPSE [Suspect]
     Active Substance: AMIFAMPRIDINE
     Dosage: 15 MG, 2X/DAY
     Route: 048
     Dates: start: 20190723, end: 2019
  14. HALDOL [Suspect]
     Active Substance: HALOPERIDOL
     Indication: AGGRESSION
     Dosage: UNK
     Dates: start: 20190720
  15. DICLOFENAC [Concomitant]
     Active Substance: DICLOFENAC
     Dosage: 4 G, 4X/DAY
     Route: 061
  16. VITAMIN B COMPLEX [Concomitant]
     Active Substance: CYANOCOBALAMIN\DEXPANTHENOL\NIACINAMIDE\PYRIDOXINE HYDROCHLORIDE\RIBOFLAVIN 5^-PHOSPHATE SODIUM\THIAMINE HYDROCHLORIDE\VITAMIN B COMPLEX
  17. FIRDAPSE [Suspect]
     Active Substance: AMIFAMPRIDINE
     Dosage: 15 MG, 2X/DAY
     Route: 048
     Dates: start: 2018, end: 20190718
  18. CENTRUM SILVER ADULT 50+ [Concomitant]
     Route: 048
  19. TYLENOL 8 HR ARTHRITIS PAIN [Concomitant]
     Active Substance: ACETAMINOPHEN

REACTIONS (28)
  - Arachnoid cyst [Not Recovered/Not Resolved]
  - Pulmonary arterial hypertension [Unknown]
  - Vomiting [Unknown]
  - Drug withdrawal syndrome [Recovering/Resolving]
  - Pulmonary congestion [Unknown]
  - Pulmonary fibrosis [Not Recovered/Not Resolved]
  - Fatigue [Unknown]
  - Dysarthria [Not Recovered/Not Resolved]
  - Cerebral small vessel ischaemic disease [Not Recovered/Not Resolved]
  - Malaise [Not Recovered/Not Resolved]
  - Asthenia [Unknown]
  - Heart rate increased [Recovered/Resolved]
  - Hypotension [Unknown]
  - Encephalopathy [Recovered/Resolved]
  - Postictal state [Unknown]
  - Aggression [Unknown]
  - Atrial fibrillation [Recovering/Resolving]
  - Atelectasis [Unknown]
  - Lung infiltration [Unknown]
  - Seizure [Recovered/Resolved]
  - Reaction to excipient [Unknown]
  - Encephalomalacia [Not Recovered/Not Resolved]
  - Pleural effusion [Unknown]
  - Incorrect dose administered [Recovered/Resolved]
  - Inappropriate schedule of product administration [Recovered/Resolved]
  - Peripheral swelling [Not Recovered/Not Resolved]
  - Somnolence [Recovering/Resolving]
  - Hyperphosphataemia [Recovered/Resolved]

NARRATIVE: CASE EVENT DATE: 2019
